FAERS Safety Report 16260333 (Version 1)
Quarter: 2019Q2

REPORT INFORMATION
  Report Type: Spontaneous
  Country: US (occurrence: US)
  Receive Date: 20190430
  Receipt Date: 20190430
  Transmission Date: 20190711
  Serious: Yes (Other)
  Sender: FDA-Public Use
  Company Number: None

PATIENT
  Age: 77 Year
  Sex: Female
  Weight: 61.2 kg

DRUGS (1)
  1. LEVOFLOXACIN 500 MG TABLETS GENERICFORLEVAQUIN 500 MG TAB [Suspect]
     Active Substance: LEVOFLOXACIN
     Indication: URINARY TRACT INFECTION
     Dosage: ?          QUANTITY:3 TABLET(S);?
     Route: 048
     Dates: start: 20190425, end: 20190425

REACTIONS (5)
  - Paraesthesia [None]
  - Tremor [None]
  - Heart rate increased [None]
  - Nightmare [None]
  - Hypertension [None]

NARRATIVE: CASE EVENT DATE: 20190425
